FAERS Safety Report 9840034 (Version 1)
Quarter: 2013Q4

REPORT INFORMATION
  Report Type: Spontaneous
  Country: US (occurrence: None)
  Receive Date: 20131206
  Receipt Date: 20131206
  Transmission Date: 20140711
  Serious: Yes (Other)
  Sender: FDA-Public Use
  Company Number: 373547

PATIENT
  Age: 74 Year
  Sex: Male
  Weight: 91.2 kg

DRUGS (1)
  1. NOVOLOG MIX 70/30 [Suspect]
     Indication: DIABETES MELLITUS
     Dosage: UNK, SUBCUTANOUES
     Route: 058
     Dates: end: 201302

REACTIONS (1)
  - Blood glucose increased [None]
